FAERS Safety Report 18423509 (Version 1)
Quarter: 2020Q4

REPORT INFORMATION
  Report Type: Spontaneous
  Country: US (occurrence: US)
  Receive Date: 20201023
  Receipt Date: 20201023
  Transmission Date: 20210114
  Serious: Yes (Other)
  Sender: FDA-Public Use
  Company Number: NVSC2020US284869

PATIENT
  Age: 32 Year
  Weight: 62 kg

DRUGS (1)
  1. HYDROXYCHLOROQUINE [Suspect]
     Active Substance: HYDROXYCHLOROQUINE
     Indication: PRODUCT USED FOR UNKNOWN INDICATION
     Dosage: 6.45 MG/KG, QD (DAILY DOSE 400 MG, TOTAL CUMULATIVE DOSE 1022 G)
     Route: 065
     Dates: start: 201604

REACTIONS (2)
  - Retinal toxicity [Unknown]
  - Overdose [Unknown]
